FAERS Safety Report 6110426-6 (Version None)
Quarter: 2009Q1

REPORT INFORMATION
  Report Type: 
  Country: None (occurrence: None)
  Receive Date: 20090310
  Receipt Date: 20090204
  Transmission Date: 20090719
  Serious: Yes (Other)
  Sender: FDA-Public Use
  Company Number: AU-ROCHE-609933

PATIENT
  Sex: Female

DRUGS (4)
  1. ISOTRETINOIN [Suspect]
     Indication: ACNE
     Route: 048
     Dates: start: 20080501
  2. DIANE [Concomitant]
     Indication: ORAL CONTRACEPTION
     Dosage: DRUG: DIANE-35, DOSE: ILLEGIBLE, RECEIVED DAILY.
     Route: 048
     Dates: start: 20080501
  3. FLUTICASONE PROPIONATE [Concomitant]
     Indication: ASTHMA
     Dosage: DOSE: 250 BD, LONG TERM
     Route: 055
  4. SALBUTAMOL [Concomitant]
     Indication: ASTHMA
     Dosage: DOSE: PRN (AS NEEDED), LONG TERM
     Route: 055

REACTIONS (2)
  - CHOLELITHIASIS [None]
  - PANCREATITIS [None]
